FAERS Safety Report 18869066 (Version 1)
Quarter: 2021Q1

REPORT INFORMATION
  Report Type: Report from Study
  Country: US (occurrence: US)
  Receive Date: 20210209
  Receipt Date: 20210209
  Transmission Date: 20210420
  Serious: Yes (Other)
  Sender: FDA-Public Use
  Company Number: US-ASTRAZENECA-2020SF48111

PATIENT
  Sex: Male

DRUGS (1)
  1. LYNPARZA [Suspect]
     Active Substance: OLAPARIB
     Indication: PROSTATE CANCER
     Route: 048

REACTIONS (5)
  - Cardiac valve disease [Unknown]
  - Prostatic specific antigen increased [Unknown]
  - Asthenia [Unknown]
  - Dyspnoea [Unknown]
  - Product dose omission issue [Unknown]
